FAERS Safety Report 8763703 (Version 4)
Quarter: 2013Q4

REPORT INFORMATION
  Report Type: Report from Study
  Country: JP (occurrence: JP)
  Receive Date: 20120828
  Receipt Date: 20131023
  Transmission Date: 20140711
  Serious: Yes (Hospitalization, Other)
  Sender: FDA-Public Use
  Company Number: JP-VERTEX PHARMACEUTICAL INC.-AE-2012-008757

PATIENT
  Age: 57 Year
  Sex: Male

DRUGS (25)
  1. VX-950 (TELAPREVIR) [Suspect]
     Indication: CHRONIC HEPATITIS C
     Dosage: 2250 MG, QD
     Route: 048
     Dates: start: 20120309, end: 20120523
  2. VX-950 (TELAPREVIR) [Suspect]
     Dosage: 1500 MG, QD
     Route: 048
     Dates: start: 20120524, end: 20120531
  3. RIBAVIRIN [Suspect]
     Indication: CHRONIC HEPATITIS C
     Dosage: 800 MG, QD
     Route: 048
     Dates: start: 20120309, end: 20120322
  4. RIBAVIRIN [Suspect]
     Dosage: 600 MG, QD
     Route: 048
     Dates: start: 20120323, end: 20120329
  5. RIBAVIRIN [Suspect]
     Dosage: 400 MG, QD
     Route: 048
     Dates: start: 20120330, end: 20120412
  6. RIBAVIRIN [Suspect]
     Dosage: 200 MG, QD
     Route: 048
     Dates: start: 20120413, end: 20120531
  7. RIBAVIRIN [Suspect]
     Dosage: 400 MG, QD
     Route: 048
     Dates: start: 20120601, end: 20120613
  8. RIBAVIRIN [Suspect]
     Dosage: 200 MG, QD
     Route: 048
     Dates: start: 20120614, end: 20120801
  9. RIBAVIRIN [Suspect]
     Dosage: 400 MG, QD
     Route: 048
     Dates: start: 20120802
  10. PEGINTRON [Suspect]
     Indication: CHRONIC HEPATITIS C
     Dosage: 1.6 ?G/KG, QW
     Route: 058
     Dates: start: 20120309, end: 20120607
  11. PEGINTRON [Suspect]
     Dosage: 1.4 ?G/KG, QW
     Route: 058
     Dates: start: 20120621, end: 20120705
  12. PEGINTRON [Suspect]
     Dosage: 1.4 ?G/KG, QW
     Route: 058
     Dates: start: 20120719
  13. TENORMIN [Concomitant]
     Dosage: 50 MG, QD
     Route: 048
     Dates: end: 20120318
  14. ACINON [Concomitant]
     Dosage: 300 MG, QD
     Route: 048
     Dates: start: 20120309
  15. PROMAC [Concomitant]
     Dosage: 150 MG, QD
     Route: 048
     Dates: start: 20120309
  16. EPADEL-S [Concomitant]
     Dosage: 1200 MG, QD
     Route: 048
     Dates: start: 20120309, end: 20120412
  17. EPADEL-S [Concomitant]
     Dosage: 1800 MG, QD
     Route: 048
     Dates: start: 20120413, end: 20120627
  18. EPADEL-S [Concomitant]
     Dosage: 1200 MG, QD
     Route: 048
     Dates: start: 20120628
  19. ELIETEN [Concomitant]
     Dosage: 15 MG, QD
     Route: 048
     Dates: start: 20120412, end: 20120530
  20. ELIETEN [Concomitant]
     Dosage: 15 MG, QD
     Route: 048
     Dates: start: 20120621, end: 20120627
  21. NU-LOTAN [Concomitant]
     Dosage: 5 MG, QD
     Route: 048
     Dates: start: 20120517
  22. NU-LOTAN [Concomitant]
     Dosage: 50 MG, QD
     Route: 048
     Dates: end: 20120613
  23. NU-LOTAN [Concomitant]
     Dosage: 25 MG, QD
     Route: 048
     Dates: start: 20120614
  24. AMLODIPINE [Concomitant]
     Dosage: 5 MG, QD
     Route: 048
     Dates: end: 20120321
  25. AMLODIPINE [Concomitant]
     Dosage: 5 MG, QD
     Route: 048
     Dates: start: 20120329, end: 20120516

REACTIONS (4)
  - Supraventricular tachycardia [Recovered/Resolved]
  - Blood creatinine increased [Recovered/Resolved]
  - Blood uric acid increased [Recovered/Resolved]
  - Haemoglobin decreased [Not Recovered/Not Resolved]
